FAERS Safety Report 9396620 (Version 1)
Quarter: 2013Q3

REPORT INFORMATION
  Report Type: Spontaneous
  Country: US (occurrence: US)
  Receive Date: 20130711
  Receipt Date: 20130711
  Transmission Date: 20140515
  Serious: Yes (Other)
  Sender: FDA-Public Use
  Company Number: US-RB-055888-13

PATIENT
  Age: 1 Year
  Sex: Male

DRUGS (9)
  1. GENERIC BUPRENORPHINE [Suspect]
     Indication: DRUG DEPENDENCE
     Route: 064
     Dates: start: 201201, end: 201205
  2. COCAINE [Suspect]
     Indication: SUBSTANCE ABUSE
     Dosage: DOSING DETAILS UNKNOWN
     Route: 064
     Dates: start: 201110, end: 20120519
  3. HEROIN [Suspect]
     Indication: DRUG DEPENDENCE
     Dosage: DOSING DETAILS UNKNOWN
     Route: 064
     Dates: start: 201110, end: 20120519
  4. OPIATES FROM THE STREETS [Suspect]
     Indication: DRUG DEPENDENCE
     Dosage: DOSING DETAILS UNKNOWN
     Route: 064
     Dates: start: 201110, end: 20120519
  5. NICOTINE [Suspect]
     Indication: NICOTINE DEPENDENCE
     Dosage: 1 PACKAGE PER DAY
     Route: 064
     Dates: start: 201110, end: 20120519
  6. XANAX [Suspect]
     Indication: ANXIETY
     Route: 064
     Dates: start: 201110, end: 20120519
  7. TRAZODONE [Suspect]
     Indication: SLEEP DISORDER
     Route: 064
     Dates: start: 201110, end: 20120519
  8. PRISTIQ [Suspect]
     Indication: DEPRESSION
     Route: 064
     Dates: start: 201110, end: 20120519
  9. FENTANYL [Suspect]
     Indication: PRODUCT USED FOR UNKNOWN INDICATION
     Dosage: DOSING DETAILS UNKNOWN
     Route: 064
     Dates: start: 2012, end: 2012

REACTIONS (3)
  - Foetal exposure during pregnancy [Recovered/Resolved]
  - Premature baby [Recovered/Resolved]
  - Low birth weight baby [Recovered/Resolved]
